FAERS Safety Report 8796257 (Version 1)
Quarter: 2012Q4

REPORT INFORMATION
  Report Type: 
  Country: NO (occurrence: NO)
  Receive Date: 20120919
  Receipt Date: 20120919
  Transmission Date: 20130627
  Serious: Yes (Other)
  Sender: FDA-Public Use
  Company Number: NO-BRISTOL-MYERS SQUIBB COMPANY-16968927

PATIENT
  Age: 40 Year
  Sex: Female

DRUGS (1)
  1. ABILIFY TABS 30 MG [Suspect]

REACTIONS (2)
  - Mania [Recovered/Resolved]
  - Motor dysfunction [Recovered/Resolved]
